FAERS Safety Report 6095184-6 (Version None)
Quarter: 2009Q1

REPORT INFORMATION
  Report Type: 
  Country: None (occurrence: None)
  Receive Date: 20090227
  Receipt Date: 20080207
  Transmission Date: 20090719
  Serious: No
  Sender: FDA-Public Use
  Company Number: A0708121A

PATIENT
  Age: 47 Year
  Sex: Male

DRUGS (4)
  1. LAMICTAL [Suspect]
     Dosage: 75MG TWICE PER DAY
     Route: 048
     Dates: start: 20071201
  2. CELEXA [Concomitant]
  3. FLU SHOT [Concomitant]
  4. STRATTERA [Concomitant]

REACTIONS (1)
  - NAUSEA [None]
